FAERS Safety Report 5278667-8 (Version None)
Quarter: 2007Q1

REPORT INFORMATION
  Report Type: 
  Country: None (occurrence: None)
  Receive Date: 20061213
  Receipt Date: 20050615
  Transmission Date: 20070707
  Serious: No
  Sender: FDA-Public Use
  Company Number: 2005UW07540

PATIENT
  Age: 34 Year
  Sex: Female

DRUGS (2)
  1. SEROQUEL [Suspect]
     Indication: ANXIETY
     Dosage: 600 MG DAILY PO
     Route: 048
     Dates: start: 20010928, end: 20050505
  2. SEROQUEL [Suspect]
     Indication: DEPRESSION
     Dosage: 600 MG DAILY PO
     Route: 048
     Dates: start: 20010928, end: 20050505

REACTIONS (3)
  - MYOCLONUS [None]
  - TARDIVE DYSKINESIA [None]
  - TREMOR [None]
